FAERS Safety Report 4884412-8 (Version None)
Quarter: 2006Q1

REPORT INFORMATION
  Report Type: 
  Country: None (occurrence: None)
  Receive Date: 20060119
  Receipt Date: 20060111
  Transmission Date: 20060701
  Serious: Yes (Other)
  Sender: FDA-Public Use
  Company Number: FR-JNJFOC-20060102719

PATIENT
  Sex: Male

DRUGS (2)
  1. REMICADE [Suspect]
     Indication: DRUG USE FOR UNKNOWN INDICATION
     Route: 042
  2. METHOTREXATE [Concomitant]
     Dosage: METHOTREXATE WAS INITIATED MORE THAN 1 YEAR AFTER THE PATIENT WAS DIAGNOSED HIV POSITIVE.
     Route: 065

REACTIONS (1)
  - GALLBLADDER CANCER [None]
